FAERS Safety Report 13548837 (Version 3)
Quarter: 2017Q4

REPORT INFORMATION
  Report Type: Spontaneous
  Country: US (occurrence: US)
  Receive Date: 20170516
  Receipt Date: 20171003
  Transmission Date: 20180320
  Serious: Yes (Hospitalization, Other)
  Sender: FDA-Public Use
  Company Number: US-BRISTOL-MYERS SQUIBB COMPANY-BMS-2017-041549

PATIENT
  Age: 38 Year
  Sex: Female

DRUGS (2)
  1. SPRYCEL [Suspect]
     Active Substance: DASATINIB
     Indication: CHRONIC MYELOID LEUKAEMIA
     Dosage: 100 MG, UNK
     Route: 048
     Dates: start: 20150924, end: 201704
  2. CELEXA [Suspect]
     Active Substance: CITALOPRAM HYDROBROMIDE
     Indication: PRODUCT USED FOR UNKNOWN INDICATION
     Dosage: 40 MG, UNK
     Route: 065

REACTIONS (15)
  - Oedema peripheral [Unknown]
  - Influenza [Recovered/Resolved]
  - Headache [Unknown]
  - Lymphadenitis [Unknown]
  - Otitis media acute [Unknown]
  - Rash [Unknown]
  - Blood magnesium decreased [Unknown]
  - Sinusitis [Unknown]
  - Splenomegaly [Unknown]
  - Electrocardiogram QT prolonged [Unknown]
  - Pleurisy [Recovering/Resolving]
  - Vitreous haemorrhage [Unknown]
  - Diabetic retinopathy [Unknown]
  - Bronchitis [Recovered/Resolved]
  - Constipation [Unknown]

NARRATIVE: CASE EVENT DATE: 20151007
